FAERS Safety Report 7741904-1 (Version None)
Quarter: 2011Q3

REPORT INFORMATION
  Report Type: 
  Country: None (occurrence: None)
  Receive Date: 20110907
  Receipt Date: 20110907
  Transmission Date: 20111222
  Serious: No
  Sender: FDA-Public Use
  Company Number: None

PATIENT
  Sex: Male
  Weight: 124.2402 kg

DRUGS (1)
  1. LYRICA [Suspect]
     Indication: RESTLESS LEGS SYNDROME
     Dosage: 100MG QD PO
     Route: 048
     Dates: start: 20101124, end: 20110214

REACTIONS (3)
  - PHARYNGEAL OEDEMA [None]
  - DIZZINESS [None]
  - HOT FLUSH [None]
